FAERS Safety Report 5644567-4 (Version None)
Quarter: 2008Q1

REPORT INFORMATION
  Report Type: 
  Country: None (occurrence: None)
  Receive Date: 20080229
  Receipt Date: 20070309
  Transmission Date: 20080703
  Serious: No
  Sender: FDA-Public Use
  Company Number: A0642620A

PATIENT
  Sex: Male

DRUGS (3)
  1. VALTREX [Suspect]
     Dosage: 1000MG PER DAY
     Route: 048
     Dates: start: 20070307
  2. M.V.I. [Concomitant]
  3. CRESTOR [Concomitant]
     Dates: end: 20070301

REACTIONS (1)
  - PARAESTHESIA [None]
